FAERS Safety Report 5235079-0 (Version None)
Quarter: 2007Q1

REPORT INFORMATION
  Report Type: 
  Country: None (occurrence: None)
  Receive Date: 20070207
  Receipt Date: 20070125
  Transmission Date: 20070707
  Serious: Yes (Other)
  Sender: FDA-Public Use
  Company Number: 2007BL000048

PATIENT
  Age: 28 Year
  Sex: Female

DRUGS (3)
  1. PREDNISOLONE SODIUM PHOSPHATE [Suspect]
     Indication: ROSACEA
     Dosage: ORAL
     Route: 048
  2. ERYTHROMYCIN (ERYTHRONYCIN) [Suspect]
     Indication: ROSACEA
     Dosage: 500 MILLIGRAMS; 3 TIMES A DAY; ORAL
     Route: 048
  3. INSULIN [Suspect]
     Indication: DIABETES MELLITUS

REACTIONS (7)
  - CAESAREAN SECTION [None]
  - DRUG EXPOSURE DURING PREGNANCY [None]
  - FOETAL ARRHYTHMIA [None]
  - GESTATIONAL DIABETES [None]
  - INTRA-UTERINE DEATH [None]
  - OLIGOHYDRAMNIOS [None]
  - STILLBIRTH [None]
